FAERS Safety Report 24865645 (Version 2)
Quarter: 2025Q1

REPORT INFORMATION
  Report Type: Spontaneous
  Country: JP (occurrence: JP)
  Receive Date: 20250121
  Receipt Date: 20250206
  Transmission Date: 20250409
  Serious: Yes (Other)
  Sender: ASTELLAS
  Company Number: JP-ASTELLAS-2025-AER-001153

PATIENT
  Age: 24 Year
  Sex: Female

DRUGS (7)
  1. XOSPATA [Suspect]
     Active Substance: GILTERITINIB
     Indication: Acute myeloid leukaemia
     Route: 048
     Dates: start: 20240610, end: 202407
  2. XOSPATA [Suspect]
     Active Substance: GILTERITINIB
     Route: 048
     Dates: start: 20240520, end: 20240601
  3. XOSPATA [Suspect]
     Active Substance: GILTERITINIB
     Route: 048
     Dates: start: 202408, end: 202408
  4. XOSPATA [Suspect]
     Active Substance: GILTERITINIB
     Route: 048
  5. XOSPATA [Suspect]
     Active Substance: GILTERITINIB
     Route: 048
     Dates: start: 202409, end: 202409
  6. FLUDARABINE PHOSPHATE [Concomitant]
     Active Substance: FLUDARABINE PHOSPHATE
     Indication: Product used for unknown indication
     Route: 065
  7. BUSULFAN [Concomitant]
     Active Substance: BUSULFAN
     Indication: Product used for unknown indication
     Route: 065

REACTIONS (3)
  - Venoocclusive liver disease [Recovered/Resolved]
  - Venoocclusive liver disease [Recovered/Resolved]
  - Acute graft versus host disease [Recovered/Resolved]

NARRATIVE: CASE EVENT DATE: 20241014
